FAERS Safety Report 15616117 (Version 4)
Quarter: 2021Q2

REPORT INFORMATION
  Report Type: Spontaneous
  Country: US (occurrence: US)
  Receive Date: 20181114
  Receipt Date: 20210524
  Transmission Date: 20210716
  Serious: No
  Sender: FDA-Public Use
  Company Number: US-PFIZER INC-2018468176

PATIENT
  Age: 62 Year
  Sex: Female

DRUGS (14)
  1. DOCETAXEL SANDOZ [Suspect]
     Active Substance: DOCETAXEL
     Indication: METASTASES TO BONE
  2. PERJETA [Concomitant]
     Active Substance: PERTUZUMAB
     Indication: CHEMOTHERAPY
     Dosage: 420 MG, CYCLIC (4 CYCLES)
  3. DOCETAXEL. [Suspect]
     Active Substance: DOCETAXEL
     Indication: METASTASES TO BONE
  4. DOCETAXEL. [Suspect]
     Active Substance: DOCETAXEL
     Indication: METASTASES TO LIVER
  5. DOCETAXEL ACCORD [Suspect]
     Active Substance: DOCETAXEL
     Indication: BREAST CANCER STAGE IV
     Dosage: 156.75 MG, CYCLIC (EVERY THREE WEEKS, 06 CYCLES)
     Dates: start: 20170107, end: 20170517
  6. TAXOTERE [Concomitant]
     Active Substance: DOCETAXEL
     Indication: CHEMOTHERAPY
     Dosage: 147 MG, CYCLIC (2 CYCLES)
  7. DOCETAXEL SANDOZ [Suspect]
     Active Substance: DOCETAXEL
     Indication: METASTASES TO LIVER
  8. DOCETAXEL ACCORD [Suspect]
     Active Substance: DOCETAXEL
     Indication: METASTASES TO LIVER
  9. DOCETAXEL ACCORD [Suspect]
     Active Substance: DOCETAXEL
     Indication: METASTASES TO BONE
  10. DOCETAXEL. [Suspect]
     Active Substance: DOCETAXEL
     Indication: BREAST CANCER STAGE IV
     Dosage: 156.75 MG, CYCLIC (EVERY THREE WEEKS, 06 CYCLES)
     Dates: start: 20170107, end: 20170517
  11. TAXOTERE [Concomitant]
     Active Substance: DOCETAXEL
     Dosage: 156.75 MG, CYCLIC (2 CYCLES)
  12. DOCETAXEL SANDOZ [Suspect]
     Active Substance: DOCETAXEL
     Indication: BREAST CANCER STAGE IV
     Dosage: 156.75 MG, CYCLIC (EVERY THREE WEEKS, 06 CYCLES)
     Dates: start: 20170107, end: 20170517
  13. HERCEPTIN [Concomitant]
     Active Substance: TRASTUZUMAB
     Indication: CHEMOTHERAPY
     Dosage: 544.8 MG, CYCLIC (2 CYCLES)
  14. T4 [Concomitant]
     Active Substance: LEVOTHYROXINE
     Dosage: UNK
     Dates: start: 19980101

REACTIONS (2)
  - Madarosis [Not Recovered/Not Resolved]
  - Alopecia [Not Recovered/Not Resolved]

NARRATIVE: CASE EVENT DATE: 20170117
